FAERS Safety Report 11010211 (Version 1)
Quarter: 2015Q2

REPORT INFORMATION
  Report Type: Spontaneous
  Country: US (occurrence: US)
  Receive Date: 20150410
  Receipt Date: 20150410
  Transmission Date: 20150821
  Serious: No
  Sender: FDA-Public Use
  Company Number: US-ASTRAZENECA-2015SE32643

PATIENT
  Age: 78 Year
  Sex: Female
  Weight: 75 kg

DRUGS (3)
  1. NEXIUM 24HR [Suspect]
     Active Substance: ESOMEPRAZOLE MAGNESIUM
     Indication: DYSPEPSIA
     Dosage: 1 DF DAILY IN THE MORNING, FOR 14 DAYS  AND WAITED 2, 3 OR 4 MONTHS TO TAKE OTHER
     Route: 048
  2. LEVOTHYROXINE [Concomitant]
     Active Substance: LEVOTHYROXINE
     Indication: THYROID DISORDER
  3. UNSPECIFIED VITAMINS [Concomitant]

REACTIONS (4)
  - Intentional product misuse [Unknown]
  - Chest pain [Unknown]
  - Dyspepsia [Unknown]
  - Drug ineffective [Unknown]
